FAERS Safety Report 5730416-2 (Version None)
Quarter: 2008Q2

REPORT INFORMATION
  Report Type: 
  Country: None (occurrence: None)
  Receive Date: 20080505
  Receipt Date: 20080505
  Transmission Date: 20081010
  Serious: Yes (Hospitalization)
  Sender: FDA-Public Use
  Company Number: None

PATIENT
  Sex: Male

DRUGS (1)
  1. AUGMENTIN '125' [Suspect]

REACTIONS (3)
  - BILIARY CIRRHOSIS PRIMARY [None]
  - CHOLESTASIS [None]
  - PANCREATITIS [None]
